FAERS Safety Report 10676977 (Version 6)
Quarter: 2015Q4

REPORT INFORMATION
  Report Type: Report from Study
  Country: KR (occurrence: KR)
  Receive Date: 20141226
  Receipt Date: 20151130
  Transmission Date: 20160304
  Serious: Yes (Hospitalization, Other)
  Sender: FDA-Public Use
  Company Number: KR-BAYER-2014-159680

PATIENT
  Age: 40 Year
  Sex: Female

DRUGS (1)
  1. BETAFERON [Suspect]
     Active Substance: INTERFERON BETA-1B
     Indication: MULTIPLE SCLEROSIS
     Dosage: 1 ML, QOD
     Route: 058
     Dates: start: 20141008

REACTIONS (27)
  - Musculoskeletal stiffness [None]
  - Injection site erythema [Recovered/Resolved]
  - Anxiety [None]
  - Injection site pain [Not Recovered/Not Resolved]
  - Depressed mood [None]
  - Pain [None]
  - Musculoskeletal stiffness [Recovering/Resolving]
  - Injection site induration [Not Recovered/Not Resolved]
  - Injection site mass [Recovering/Resolving]
  - Menstrual disorder [None]
  - Injection site swelling [Recovering/Resolving]
  - Injection site bruising [None]
  - Erythema [None]
  - Oligomenorrhoea [None]
  - Erythema [Recovered/Resolved]
  - Hospitalisation [None]
  - Injection site discolouration [None]
  - Hiccups [Recovering/Resolving]
  - Vomiting [None]
  - Pain in extremity [None]
  - Injection site induration [Recovered/Resolved]
  - Injection site pain [Recovered/Resolved]
  - Injection site swelling [Recovered/Resolved]
  - Abasia [Recovering/Resolving]
  - Injection site scar [None]
  - Insomnia [Not Recovered/Not Resolved]
  - Monoplegia [Recovering/Resolving]

NARRATIVE: CASE EVENT DATE: 201507
